FAERS Safety Report 13817377 (Version 1)
Quarter: 2017Q3

REPORT INFORMATION
  Report Type: Spontaneous
  Country: TR (occurrence: TR)
  Receive Date: 20170731
  Receipt Date: 20170731
  Transmission Date: 20171127
  Serious: Yes (Death)
  Sender: FDA-Public Use
  Company Number: TR-ACTELION-A-CH2017-157172

PATIENT
  Age: 14 Year
  Sex: Male
  Weight: 32 kg

DRUGS (5)
  1. ZAVESCA [Suspect]
     Active Substance: MIGLUSTAT
     Indication: NIEMANN-PICK DISEASE
     Dosage: 2 DF, BID
     Route: 048
     Dates: start: 201303
  2. TRILEPTAL [Concomitant]
     Active Substance: OXCARBAZEPINE
  3. LASIX [Concomitant]
     Active Substance: FUROSEMIDE
  4. ALDACTONE [Concomitant]
     Active Substance: SPIRONOLACTONE
  5. DEPAKIN [Concomitant]
     Active Substance: VALPROATE SODIUM

REACTIONS (3)
  - Respiratory failure [Fatal]
  - Lung disorder [Fatal]
  - Liver disorder [Fatal]
